FAERS Safety Report 8827327 (Version 1)
Quarter: 2012Q4

REPORT INFORMATION
  Report Type: 
  Country: US (occurrence: US)
  Receive Date: 20121005
  Receipt Date: 20121005
  Transmission Date: 20130627
  Serious: No
  Sender: FDA-Public Use
  Company Number: US-ASTRAZENECA-2012SE76000

PATIENT
  Age: 51 Year
  Sex: Female
  Weight: 99.3 kg

DRUGS (9)
  1. CRESTOR [Suspect]
     Indication: BLOOD CHOLESTEROL INCREASED
     Route: 048
     Dates: end: 201209
  2. OMEPRAZOLE [Suspect]
     Indication: GASTROOESOPHAGEAL REFLUX DISEASE
     Route: 048
     Dates: start: 2012
  3. OMEPRAZOLE [Suspect]
     Indication: GASTROOESOPHAGEAL REFLUX DISEASE
     Route: 048
     Dates: start: 2012
  4. SYNTHROID [Concomitant]
     Indication: HYPOTHYROIDISM
  5. ZOLOFT [Concomitant]
     Indication: DEPRESSION
  6. AMITRIPTYLINE [Concomitant]
  7. ABILIFY [Concomitant]
     Indication: DEPRESSION
  8. FISH OIL [Concomitant]
     Indication: BLOOD CHOLESTEROL
  9. B6 VITAMIN [Concomitant]

REACTIONS (7)
  - Pain in extremity [Not Recovered/Not Resolved]
  - Chest pain [Unknown]
  - Neck pain [Unknown]
  - Abdominal pain upper [Not Recovered/Not Resolved]
  - Muscular weakness [Unknown]
  - Gastrooesophageal reflux disease [None]
  - Intentional drug misuse [Unknown]
